FAERS Safety Report 18967887 (Version 1)
Quarter: 2021Q1

REPORT INFORMATION
  Report Type: Spontaneous
  Country: US (occurrence: US)
  Receive Date: 20210304
  Receipt Date: 20210304
  Transmission Date: 20210420
  Serious: No
  Sender: FDA-Public Use
  Company Number: US-TEVA-2021-US-1887133

PATIENT
  Age: 62 Year
  Sex: Male

DRUGS (8)
  1. AUSTEDO [Suspect]
     Active Substance: DEUTETRABENAZINE
     Indication: TARDIVE DYSKINESIA
     Dosage: 24 MILLIGRAM DAILY;
     Route: 048
     Dates: start: 20210125, end: 20210217
  2. CHLORTALIDONE 25 MG [Concomitant]
     Route: 048
  3. XANAX 2 MG [Concomitant]
     Route: 048
  4. LAMICTAL [Concomitant]
     Active Substance: LAMOTRIGINE
     Route: 048
  5. TRULICITY 0.75MG/0.5 ML [Concomitant]
     Dosage: SOLUTION PEN?INJECTOR
     Route: 058
  6. AMBIEN [Concomitant]
     Active Substance: ZOLPIDEM TARTRATE
     Route: 048
  7. VRAYLAR 1.5 MG [Concomitant]
     Route: 048
  8. BENAZEPRIL HCL 40 MG [Concomitant]
     Route: 048

REACTIONS (7)
  - Disturbance in attention [Unknown]
  - Irritability [Unknown]
  - Mood altered [Unknown]
  - Impaired work ability [Unknown]
  - Somnolence [Unknown]
  - Crying [Unknown]
  - Insomnia [Unknown]

NARRATIVE: CASE EVENT DATE: 2021
